FAERS Safety Report 7960905-1 (Version None)
Quarter: 2011Q4

REPORT INFORMATION
  Report Type: 
  Country: None (occurrence: None)
  Receive Date: 20111201
  Receipt Date: 20111116
  Transmission Date: 20120403
  Serious: Yes (Disabling, Other)
  Sender: FDA-Public Use
  Company Number: 2010MA002231

PATIENT
  Sex: Female

DRUGS (23)
  1. CLONAZEPAM [Concomitant]
  2. FLUCONAZOLE [Concomitant]
  3. METHYLDOPA [Concomitant]
  4. NASONEX [Concomitant]
  5. VICODIN [Concomitant]
  6. IBUPROFEN [Concomitant]
  7. RELPAX [Concomitant]
  8. ALUPENT [Concomitant]
  9. AZITHROMYCIN [Concomitant]
  10. HYDROCODONE [Concomitant]
  11. ACETAMINOPHEN [Concomitant]
  12. METOCLOPRAMIDE [Suspect]
     Dosage: 10 MG;TID;PO
     Route: 048
     Dates: start: 20040101, end: 20091216
  13. KLONOPIN [Concomitant]
  14. LIDOCAINE [Concomitant]
  15. NORCO [Concomitant]
  16. CARISOPRODOL [Concomitant]
  17. LEVOTHYROXINE SODIUM [Concomitant]
  18. MULTIPLE VITAMINS [Concomitant]
  19. RANITIDINE [Concomitant]
  20. ADVAIR DISKUS 100/50 [Concomitant]
  21. PENICILLIN [Concomitant]
  22. PROVIGIL [Concomitant]
  23. OXYCONTIN [Concomitant]

REACTIONS (31)
  - NERVOUS SYSTEM DISORDER [None]
  - ACTIVITIES OF DAILY LIVING IMPAIRED [None]
  - DYSARTHRIA [None]
  - APHASIA [None]
  - ECONOMIC PROBLEM [None]
  - EMOTIONAL DISTRESS [None]
  - BALANCE DISORDER [None]
  - DIZZINESS [None]
  - TARDIVE DYSKINESIA [None]
  - DROOLING [None]
  - CEREBRAL CYST [None]
  - LACUNAR INFARCTION [None]
  - EXTRAPYRAMIDAL DISORDER [None]
  - DEFORMITY [None]
  - DISABILITY [None]
  - MULTIPLE INJURIES [None]
  - PARAESTHESIA [None]
  - ENDODONTIC PROCEDURE [None]
  - PAIN [None]
  - TREMOR [None]
  - HEADACHE [None]
  - MUSCLE SPASMS [None]
  - MUSCLE TWITCHING [None]
  - TINNITUS [None]
  - DEMYELINATION [None]
  - NARCOLEPSY [None]
  - MENTAL DISORDER [None]
  - QUALITY OF LIFE DECREASED [None]
  - HYPOAESTHESIA [None]
  - INCORRECT DRUG ADMINISTRATION DURATION [None]
  - VISION BLURRED [None]
